FAERS Safety Report 5132999-2 (Version None)
Quarter: 2006Q4

REPORT INFORMATION
  Report Type: 
  Country: None (occurrence: None)
  Receive Date: 20061017
  Receipt Date: 20061005
  Transmission Date: 20070319
  Serious: Yes (Disabling)
  Sender: FDA-Public Use
  Company Number: GXKR2006BR06304

PATIENT
  Sex: Male

DRUGS (1)
  1. CIPROBIOT (NGX) (CIPROFLOXACIN) [Suspect]
     Indication: PHARYNGITIS
     Dosage: 500 MG, BID, ORAL
     Route: 048

REACTIONS (2)
  - ARTHRALGIA [None]
  - DIZZINESS [None]
